FAERS Safety Report 23863195 (Version 1)
Quarter: 2024Q2

REPORT INFORMATION
  Report Type: Spontaneous
  Country: GB (occurrence: GB)
  Receive Date: 20240516
  Receipt Date: 20240516
  Transmission Date: 20240716
  Serious: Yes (Hospitalization)
  Sender: FDA-Public Use
  Company Number: GB-MYLANLABS-2023M1126192

PATIENT
  Age: 24 Year
  Sex: Female

DRUGS (2)
  1. CLOZARIL [Suspect]
     Active Substance: CLOZAPINE
     Indication: Borderline personality disorder
     Dosage: UNK (PROPOSED COMMENCEMENT DATE: 27-NOV-2023)
     Route: 065
  2. CLOZARIL [Suspect]
     Active Substance: CLOZAPINE
     Indication: Schizophrenia
     Dosage: UNK
     Route: 048
     Dates: start: 20231124

REACTIONS (3)
  - Gastrointestinal disorder [Unknown]
  - Eosinophilia [Unknown]
  - Off label use [Unknown]

NARRATIVE: CASE EVENT DATE: 20231214
